APPROVED DRUG PRODUCT: FESOTERODINE FUMARATE
Active Ingredient: FESOTERODINE FUMARATE
Strength: 4MG
Dosage Form/Route: TABLET, EXTENDED RELEASE;ORAL
Application: A204983 | Product #001
Applicant: CHARTWELL RX SCIENCES LLC
Approved: Jan 5, 2023 | RLD: No | RS: No | Type: DISCN